FAERS Safety Report 24461169 (Version 1)
Quarter: 2024Q4

REPORT INFORMATION
  Report Type: Report from Study
  Country: US (occurrence: US)
  Receive Date: 20241018
  Receipt Date: 20241018
  Transmission Date: 20250115
  Serious: No
  Sender: ROCHE
  Company Number: US-ROCHE-3563579

PATIENT
  Age: 69 Year
  Sex: Female
  Weight: 73.94 kg

DRUGS (7)
  1. RITUXAN [Suspect]
     Active Substance: RITUXIMAB
     Indication: Immunology test abnormal
     Dosage: MORE DOSAGE INFORMATION IS 500 MG SINGLE-USE VIAL
     Route: 041
     Dates: start: 20230117, end: 20240117
  2. RITUXAN [Suspect]
     Active Substance: RITUXIMAB
     Indication: Microscopic polyangiitis
     Route: 041
  3. RITUXAN [Suspect]
     Active Substance: RITUXIMAB
     Indication: Anti-neutrophil cytoplasmic antibody positive vasculitis
  4. VALTREX [Concomitant]
     Active Substance: VALACYCLOVIR HYDROCHLORIDE
  5. ADOXA [Concomitant]
     Active Substance: DOXYCYCLINE
  6. VITAMIN C [Concomitant]
     Active Substance: ASCORBIC ACID
  7. VENTOLIN HFA [Concomitant]
     Active Substance: ALBUTEROL SULFATE

REACTIONS (7)
  - Off label use [Unknown]
  - Hyperlipidaemia [Unknown]
  - Herpes zoster [Unknown]
  - Anti-thyroid antibody increased [Unknown]
  - Liver function test increased [Unknown]
  - Arteriosclerosis coronary artery [Unknown]
  - Bone density decreased [Unknown]
